FAERS Safety Report 20743306 (Version 3)
Quarter: 2023Q4

REPORT INFORMATION
  Report Type: Report from Study
  Country: NL (occurrence: NL)
  Receive Date: 20220425
  Receipt Date: 20231016
  Transmission Date: 20240110
  Serious: Yes (Hospitalization)
  Sender: FDA-Public Use
  Company Number: NL-ROCHE-3074804

PATIENT
  Age: 67 Year
  Sex: Female

DRUGS (5)
  1. BEVACIZUMAB [Suspect]
     Active Substance: BEVACIZUMAB
     Indication: Colorectal cancer metastatic
     Dosage: 7.5 MILLIGRAM/KILOGRAM, Q3WK
     Route: 042
     Dates: start: 20220204, end: 20220223
  2. OXALIPLATIN [Suspect]
     Active Substance: OXALIPLATIN
     Indication: Colorectal cancer metastatic
     Dosage: 130 MILLIGRAM/SQ. METER, Q3WK/ DATE OF LAST DOSE: 23/FEB/2022
     Route: 042
     Dates: start: 20220204, end: 20220223
  3. CAPECITABINE [Suspect]
     Active Substance: CAPECITABINE
     Indication: Colorectal cancer metastatic
     Dosage: 1000 MILLIGRAM/SQ. METER, BID/ DATE OF LAST DOSE: 23/FEB/2022
     Route: 048
     Dates: start: 20220204
  4. CAPECITABINE [Suspect]
     Active Substance: CAPECITABINE
     Dosage: 2000 MILLIGRAM/SQ. METER, QD/ DATE OF LAST DOSE: 23/FEB/2022
     Route: 048
     Dates: start: 20220204
  5. CAPECITABINE [Suspect]
     Active Substance: CAPECITABINE
     Dosage: 4000 MG/M2, TWICE A DAY, 4000 MG/M2, TWICE A DAY; DATE OF LAST DOSE: 23/FEB/2022
     Route: 048
     Dates: start: 20220204, end: 20220223

REACTIONS (2)
  - Arteriospasm coronary [Unknown]
  - Pleural effusion [Recovered/Resolved]

NARRATIVE: CASE EVENT DATE: 20220223
